FAERS Safety Report 9332464 (Version 4)
Quarter: 2013Q3

REPORT INFORMATION
  Report Type: Report from Study
  Country: GB (occurrence: GB)
  Receive Date: 20130606
  Receipt Date: 20130905
  Transmission Date: 20140515
  Serious: Yes (Death, Hospitalization)
  Sender: FDA-Public Use
  Company Number: GB-ROCHE-1232914

PATIENT
  Age: 74 Year
  Sex: Female
  Weight: 100 kg

DRUGS (15)
  1. TOCILIZUMAB [Suspect]
     Indication: RHEUMATOID ARTHRITIS
     Route: 042
     Dates: start: 20110427, end: 20130509
  2. FUROSEMIDE [Concomitant]
     Route: 048
  3. PREDNISOLONE [Concomitant]
     Route: 048
     Dates: start: 2002
  4. CITALOPRAM [Concomitant]
  5. AMITRIPTYLINE [Concomitant]
     Indication: PAIN
     Route: 048
     Dates: start: 2005
  6. WARFARIN [Concomitant]
     Indication: DEEP VEIN THROMBOSIS
  7. OXYCONTIN [Concomitant]
     Route: 048
  8. OXYBUTYNIN [Concomitant]
     Route: 048
  9. BUPRENORPHINE [Concomitant]
     Route: 065
  10. KETAMINE [Concomitant]
  11. PREGABALIN [Concomitant]
     Route: 048
     Dates: start: 2007
  12. ALENDRONIC ACID [Concomitant]
     Route: 065
     Dates: start: 2005
  13. TOPIRAMATE [Concomitant]
     Route: 065
  14. SIMVASTATIN [Concomitant]
     Route: 048
  15. METHOTREXATE [Concomitant]
     Indication: PULMONARY FIBROSIS

REACTIONS (8)
  - Pneumonia [Fatal]
  - Sepsis [Not Recovered/Not Resolved]
  - Hypotension [Not Recovered/Not Resolved]
  - Renal failure acute [Not Recovered/Not Resolved]
  - Toxicity to various agents [Not Recovered/Not Resolved]
  - Renal failure [Not Recovered/Not Resolved]
  - Cough [Not Recovered/Not Resolved]
  - Urine output decreased [Not Recovered/Not Resolved]
